FAERS Safety Report 22967378 (Version 4)
Quarter: 2024Q1

REPORT INFORMATION
  Report Type: Spontaneous
  Country: US (occurrence: US)
  Receive Date: 20230921
  Receipt Date: 20240305
  Transmission Date: 20240409
  Serious: Yes (Other)
  Sender: FDA-Public Use
  Company Number: US-PFIZER INC-PV202300104366

PATIENT
  Age: 70 Year
  Sex: Female
  Weight: 58.957 kg

DRUGS (4)
  1. IBRANCE [Suspect]
     Active Substance: PALBOCICLIB
     Indication: Breast cancer female
     Dosage: TAKE 1 TABLET (100 MG) BY MOUTH DAILY FOR 21 DAYS. TAKE ON DAYS 1 TO 21 FOLLOWED BY 7 DAYS OFF
     Route: 048
     Dates: start: 20230602, end: 202306
  2. IBRANCE [Suspect]
     Active Substance: PALBOCICLIB
     Dosage: DAILY, DAY 1-21, THEN 7 DAYS OFF
     Route: 048
     Dates: start: 20230623, end: 20230926
  3. FASLODEX [Concomitant]
     Active Substance: FULVESTRANT
     Indication: Breast cancer female
     Dosage: UNK
     Dates: start: 20230622, end: 20230831
  4. ZOLEDRONIC ACID [Concomitant]
     Active Substance: ZOLEDRONIC ACID
     Indication: Breast cancer female
     Dosage: UNK
     Dates: start: 20230608

REACTIONS (7)
  - Hypokalaemia [Recovered/Resolved]
  - Renal failure [Recovered/Resolved]
  - Illness [Recovered/Resolved]
  - Menopausal symptoms [Unknown]
  - Nausea [Recovered/Resolved]
  - Vomiting [Recovered/Resolved]
  - Mood swings [Recovered/Resolved]

NARRATIVE: CASE EVENT DATE: 20230724
